FAERS Safety Report 4343151-2 (Version None)
Quarter: 2004Q2

REPORT INFORMATION
  Report Type: 
  Country: None (occurrence: None)
  Receive Date: 20040413
  Receipt Date: 20040311
  Transmission Date: 20050107
  Serious: Yes (Hospitalization)
  Sender: FDA-Public Use
  Company Number: 200410124BYL

PATIENT
  Age: 11 Month
  Sex: Male
  Weight: 9.9 kg

DRUGS (4)
  1. GAMIMUNE N 5% [Suspect]
     Indication: KAWASAKI'S DISEASE
     Dosage: 20 G, QOD, INTRAVENOUS DRIP
     Route: 041
     Dates: start: 20031121, end: 20031122
  2. ROCEPHIN [Concomitant]
  3. SOLITA-T3 INJECTION [Concomitant]
  4. FROBEN [Concomitant]

REACTIONS (4)
  - ALANINE AMINOTRANSFERASE INCREASED [None]
  - ASPARTATE AMINOTRANSFERASE INCREASED [None]
  - BLOOD LACTATE DEHYDROGENASE INCREASED [None]
  - HEPATIC FUNCTION ABNORMAL [None]
